FAERS Safety Report 21564749 (Version 1)
Quarter: 2022Q4

REPORT INFORMATION
  Report Type: Spontaneous
  Country: US (occurrence: US)
  Receive Date: 20221108
  Receipt Date: 20221108
  Transmission Date: 20230112
  Serious: No
  Sender: FDA-Public Use
  Company Number: US-drreddys-SPO/USA/22/0156475

PATIENT
  Age: 19 Year
  Sex: Female

DRUGS (1)
  1. ZENATANE [Suspect]
     Active Substance: ISOTRETINOIN
     Indication: Acne
     Dosage: RMA ISSUE DATE?07 OCTOBER 2022 05:48:00 PM, 09 SEPTEMBER 2022 11:22:42 AM, 08 AUGUST 2022 10:39:58 A

REACTIONS (1)
  - Adverse drug reaction [Unknown]
